FAERS Safety Report 17600403 (Version 2)
Quarter: 2020Q2

REPORT INFORMATION
  Report Type: Spontaneous
  Country: JP (occurrence: JP)
  Receive Date: 20200330
  Receipt Date: 20200414
  Transmission Date: 20200713
  Serious: Yes (Other)
  Sender: FDA-Public Use
  Company Number: JP-PFIZER INC-2020126885

PATIENT
  Age: 35 Year
  Sex: Male

DRUGS (10)
  1. EFFEXOR [Suspect]
     Active Substance: VENLAFAXINE HYDROCHLORIDE
     Dosage: UNK UNK, 1X/DAY (75)
     Route: 048
     Dates: start: 20190807, end: 20190910
  2. ABILIFY [Suspect]
     Active Substance: ARIPIPRAZOLE
     Indication: DEPRESSION
     Dosage: UNK UNK, 1X/DAY (1.5)
     Route: 048
     Dates: start: 20191128
  3. EFFEXOR [Suspect]
     Active Substance: VENLAFAXINE HYDROCHLORIDE
     Dosage: UNK, 1X/DAY (112.5)
     Route: 048
     Dates: start: 20191002, end: 20191225
  4. EFFEXOR [Suspect]
     Active Substance: VENLAFAXINE HYDROCHLORIDE
     Indication: DEPRESSION
     Dosage: UNK, 1X/DAY (37.5)
     Route: 048
     Dates: start: 20190221, end: 20190227
  5. EFFEXOR [Suspect]
     Active Substance: VENLAFAXINE HYDROCHLORIDE
     Dosage: 112.5, 1X/DAY
     Route: 048
     Dates: start: 20190404, end: 20190806
  6. EFFEXOR [Suspect]
     Active Substance: VENLAFAXINE HYDROCHLORIDE
     Dosage: UNK, 1X/DAY (75)
     Route: 048
     Dates: start: 20190228, end: 20190403
  7. VALPROIC ACID. [Concomitant]
     Active Substance: VALPROIC ACID
     Indication: MANIA
     Dosage: 200, 2X/DAY
     Route: 048
     Dates: start: 20191226, end: 20191231
  8. EFFEXOR [Suspect]
     Active Substance: VENLAFAXINE HYDROCHLORIDE
     Dosage: 37.5, 1X/DAY
     Route: 048
     Dates: start: 20190911, end: 20191001
  9. VALPROIC ACID. [Concomitant]
     Active Substance: VALPROIC ACID
     Dosage: UNK UNK, 2X/DAY  (100)
     Route: 048
     Dates: start: 20200109, end: 20200109
  10. EFFEXOR [Suspect]
     Active Substance: VENLAFAXINE HYDROCHLORIDE
     Dosage: 37.5, 1X/DAY
     Route: 048
     Dates: start: 20191226, end: 20191231

REACTIONS (3)
  - Withdrawal syndrome [Unknown]
  - Bipolar disorder [Recovered/Resolved]
  - Mania [Recovered/Resolved]

NARRATIVE: CASE EVENT DATE: 201912
